FAERS Safety Report 16170531 (Version 1)
Quarter: 2019Q2

REPORT INFORMATION
  Report Type: Spontaneous
  Country: CM (occurrence: CM)
  Receive Date: 20190408
  Receipt Date: 20190408
  Transmission Date: 20190711
  Serious: Yes (Disabling, Other)
  Sender: FDA-Public Use
  Company Number: CM-RICON PHARMA, LLC-RIC201904-000211

PATIENT
  Age: 58 Year
  Sex: Female

DRUGS (1)
  1. DICLOFENAC SODIUM. [Suspect]
     Active Substance: DICLOFENAC SODIUM
     Indication: ARTHRALGIA
     Route: 030

REACTIONS (5)
  - Peripheral ischaemia [Not Recovered/Not Resolved]
  - Amputation [Not Recovered/Not Resolved]
  - Skin discolouration [Not Recovered/Not Resolved]
  - Necrosis [Not Recovered/Not Resolved]
  - Pain [Not Recovered/Not Resolved]
